FAERS Safety Report 19771031 (Version 1)
Quarter: 2021Q3

REPORT INFORMATION
  Report Type: Spontaneous
  Country: US (occurrence: US)
  Receive Date: 20210901
  Receipt Date: 20210901
  Transmission Date: 20211014
  Serious: No
  Sender: FDA-Public Use
  Company Number: US-AMGEN-USASP2021132982

PATIENT
  Age: 81 Year
  Sex: Female

DRUGS (2)
  1. IMLYGIC [Suspect]
     Active Substance: TALIMOGENE LAHERPAREPVEC
     Indication: NEUROENDOCRINE CARCINOMA OF THE SKIN
     Dosage: UNK (4 ML X 10^8 VIALS)
     Route: 065
     Dates: start: 20210513
  2. IMLYGIC [Suspect]
     Active Substance: TALIMOGENE LAHERPAREPVEC
     Indication: OFF LABEL USE

REACTIONS (2)
  - SARS-CoV-2 test positive [Unknown]
  - Off label use [Unknown]

NARRATIVE: CASE EVENT DATE: 202108
